FAERS Safety Report 6197306-5 (Version None)
Quarter: 2009Q2

REPORT INFORMATION
  Report Type: 
  Country: None (occurrence: None)
  Receive Date: 20090521
  Receipt Date: 20090515
  Transmission Date: 20091009
  Serious: Yes (Other)
  Sender: FDA-Public Use
  Company Number: CN-JNJFOC-20090503926

PATIENT
  Age: 65 Year
  Sex: Male

DRUGS (1)
  1. NIZORAL [Suspect]
     Indication: OESOPHAGITIS
     Route: 048

REACTIONS (5)
  - MALAISE [None]
  - MYALGIA [None]
  - NAUSEA [None]
  - SYNCOPE [None]
  - VOMITING [None]
